FAERS Safety Report 8406493-7 (Version None)
Quarter: 2012Q2

REPORT INFORMATION
  Report Type: 
  Country: None (occurrence: None)
  Receive Date: 20120604
  Receipt Date: 20120530
  Transmission Date: 20120825
  Serious: Yes (Hospitalization)
  Sender: FDA-Public Use
  Company Number: US-BAYER-2012-054581

PATIENT
  Age: 17 Year
  Sex: Female
  Weight: 52.608 kg

DRUGS (6)
  1. YAZ [Suspect]
     Indication: OLIGOMENORRHOEA
     Dosage: UNK
  2. YAZ [Suspect]
     Indication: AMENORRHOEA
  3. DESONIDE [Concomitant]
     Dosage: 0.05 %, UNK
     Route: 061
     Dates: start: 20111104
  4. NAPROXEN [Concomitant]
     Dosage: 500 MG, UNK
     Route: 048
     Dates: start: 20111207
  5. DROSPIRENONE AND ETHINYL ESTRADIOL [Suspect]
  6. FLUTICASONE FUROATE [Concomitant]
     Dosage: UNK
     Route: 045
     Dates: start: 20111010

REACTIONS (1)
  - PULMONARY EMBOLISM [None]
